FAERS Safety Report 8286352-3 (Version None)
Quarter: 2012Q2

REPORT INFORMATION
  Report Type: 
  Country: None (occurrence: None)
  Receive Date: 20120411
  Receipt Date: 20120411
  Transmission Date: 20120825
  Serious: Yes (Disabling)
  Sender: FDA-Public Use
  Company Number: None

PATIENT
  Age: 52 Year
  Sex: Female
  Weight: 49.8957 kg

DRUGS (2)
  1. ZOLOFT [Suspect]
     Indication: DEPRESSION
     Dosage: 75 MG ONCE DAILY
     Dates: start: 20070701, end: 20070901
  2. ZOLOFT [Suspect]
     Indication: ANXIETY
     Dosage: 75 MG ONCE DAILY
     Dates: start: 20070701, end: 20070901

REACTIONS (2)
  - CONTUSION [None]
  - MACULAR HOLE [None]
